FAERS Safety Report 22232413 (Version 1)
Quarter: 2023Q2

REPORT INFORMATION
  Report Type: Spontaneous
  Country: US (occurrence: US)
  Receive Date: 20230420
  Receipt Date: 20230420
  Transmission Date: 20230721
  Serious: Yes (Other)
  Sender: FDA-Public Use
  Company Number: US-drreddys-SPO/USA/23/0163744

PATIENT
  Age: 47 Year
  Sex: Female

DRUGS (3)
  1. HEPARIN SODIUM [Suspect]
     Active Substance: HEPARIN SODIUM
     Indication: Cerebral venous thrombosis
  2. NATALIZUMAB [Concomitant]
     Active Substance: NATALIZUMAB
     Indication: Optic neuritis
  3. DIMETHYL FUMARATE [Concomitant]
     Active Substance: DIMETHYL FUMARATE
     Indication: Relapsing-remitting multiple sclerosis

REACTIONS (2)
  - Protein S increased [Unknown]
  - Coagulation factor VIII level increased [Unknown]
